FAERS Safety Report 12541819 (Version 1)
Quarter: 2016Q3

REPORT INFORMATION
  Report Type: Spontaneous
  Country: ES (occurrence: ES)
  Receive Date: 20160708
  Receipt Date: 20160708
  Transmission Date: 20161109
  Serious: Yes (Other)
  Sender: FDA-Public Use
  Company Number: ES-ABBVIE-16P-144-1668210-00

PATIENT
  Age: 63 Year
  Sex: Male

DRUGS (5)
  1. MYCOPHENOLATE [Concomitant]
     Active Substance: MYCOPHENOLIC ACID
     Indication: PRODUCT USED FOR UNKNOWN INDICATION
     Dates: start: 200705
  2. EVEROLIMUS [Interacting]
     Active Substance: EVEROLIMUS
     Indication: RENAL TRANSPLANT
     Dosage: LOW DOSES
     Route: 065
     Dates: start: 200705
  3. VIEKIRAX [Suspect]
     Active Substance: OMBITASVIR\PARITAPREVIR\RITONAVIR
     Indication: HEPATITIS C
     Route: 048
     Dates: start: 20160419
  4. EXVIERA [Interacting]
     Active Substance: DASABUVIR
     Indication: HEPATITIS C
     Route: 048
     Dates: start: 20160419
  5. PREDNISONE. [Concomitant]
     Active Substance: PREDNISONE
     Indication: PRODUCT USED FOR UNKNOWN INDICATION
     Dates: start: 200705

REACTIONS (5)
  - Oedema [Unknown]
  - Skin lesion [Unknown]
  - Peripheral ischaemia [Unknown]
  - Drug level increased [Recovered/Resolved]
  - Arteriovenous fistula thrombosis [Unknown]

NARRATIVE: CASE EVENT DATE: 2016
